FAERS Safety Report 4531922-9 (Version None)
Quarter: 2004Q4

REPORT INFORMATION
  Report Type: 
  Country: None (occurrence: None)
  Receive Date: 20041217
  Receipt Date: 20041202
  Transmission Date: 20050328
  Serious: Yes (Death)
  Sender: FDA-Public Use
  Company Number: 2004-0007567

PATIENT
  Age: 63 Year
  Sex: Male

DRUGS (3)
  1. VIREAD [Suspect]
     Dosage: ORAL
     Route: 048
     Dates: start: 20040726, end: 20040901
  2. ZERIT [Suspect]
     Dosage: ORAL
     Route: 048
     Dates: start: 20040726, end: 20040901
  3. CRIXIVAN [Suspect]
     Dosage: 800 MG, 1 IN 1 D, ORAL
     Route: 048
     Dates: start: 20040726, end: 20040901

REACTIONS (19)
  - ANOREXIA [None]
  - BLOOD BILIRUBIN INCREASED [None]
  - BODY TEMPERATURE DECREASED [None]
  - CATHETER SITE HAEMORRHAGE [None]
  - CIRCULATORY COLLAPSE [None]
  - COMA [None]
  - GENERAL PHYSICAL HEALTH DETERIORATION [None]
  - HAEMODYNAMIC INSTABILITY [None]
  - HYPERKALAEMIA [None]
  - HYPONATRAEMIA [None]
  - LACTIC ACIDOSIS [None]
  - METABOLIC ACIDOSIS [None]
  - PO2 DECREASED [None]
  - RENAL FAILURE [None]
  - RESPIRATORY RATE INCREASED [None]
  - SHOCK [None]
  - SOMNOLENCE [None]
  - THROMBOCYTOPENIA [None]
  - WEIGHT DECREASED [None]
